FAERS Safety Report 4612484-4 (Version None)
Quarter: 2005Q1

REPORT INFORMATION
  Report Type: 
  Country: None (occurrence: None)
  Receive Date: 20050316
  Receipt Date: 20050316
  Transmission Date: 20050727
  Serious: Yes (Other)
  Sender: FDA-Public Use
  Company Number: None

PATIENT
  Sex: Female
  Weight: 57 kg

DRUGS (8)
  1. FLUCONAZOLE [Suspect]
     Indication: VAGINAL MYCOSIS
     Dosage: 150 MG X 1 PO
     Route: 048
     Dates: start: 20050225
  2. ALBUTEROL [Concomitant]
  3. CETIRIZINE HCL [Concomitant]
  4. ESOMEPRAZOLE [Concomitant]
  5. FLONASE [Concomitant]
  6. COMBIVIR [Concomitant]
  7. KALETRA [Concomitant]
  8. NITAZOXANIDE [Concomitant]

REACTIONS (2)
  - DRUG INEFFECTIVE [None]
  - PHARMACEUTICAL PRODUCT COMPLAINT [None]
